FAERS Safety Report 9339207 (Version 1)
Quarter: 2013Q2

REPORT INFORMATION
  Report Type: Spontaneous
  Country: BR (occurrence: BR)
  Receive Date: 20130610
  Receipt Date: 20130610
  Transmission Date: 20140414
  Serious: Yes (Death)
  Sender: FDA-Public Use
  Company Number: BR-PFIZER INC-2013149200

PATIENT
  Age: 67 Year
  Sex: Female

DRUGS (4)
  1. SUTENT [Suspect]
     Indication: RENAL CELL CARCINOMA
     Dosage: 50 MG, CYCLE 4 X 2
     Route: 048
     Dates: start: 20130329
  2. ZOMETA [Concomitant]
     Dosage: 1X/MONTH
  3. DECADRON [Concomitant]
     Dosage: EVERY 12 HOURS
  4. OMEPRAZOLE [Concomitant]

REACTIONS (12)
  - Death [Fatal]
  - Oropharyngeal pain [Not Recovered/Not Resolved]
  - Cough [Not Recovered/Not Resolved]
  - Feeling abnormal [Unknown]
  - Dysphonia [Unknown]
  - Asthenia [Unknown]
  - Oral herpes [Not Recovered/Not Resolved]
  - Pigmentation disorder [Not Recovered/Not Resolved]
  - Dizziness [Not Recovered/Not Resolved]
  - Influenza [Not Recovered/Not Resolved]
  - Headache [Not Recovered/Not Resolved]
  - Tinnitus [Not Recovered/Not Resolved]
